FAERS Safety Report 7323361-2 (Version None)
Quarter: 2011Q1

REPORT INFORMATION
  Report Type: 
  Country: None (occurrence: None)
  Receive Date: 20110301
  Receipt Date: 20110218
  Transmission Date: 20110831
  Serious: Yes (Other)
  Sender: FDA-Public Use
  Company Number: MX-ELI_LILLY_AND_COMPANY-MX201102000796

PATIENT
  Age: 79 Year
  Sex: Female

DRUGS (5)
  1. CALCIUM [Concomitant]
     Dosage: UNK, UNKNOWN
     Route: 065
  2. ATACAND [Concomitant]
     Dosage: 16 MG, DAILY (1/D)
     Route: 065
     Dates: start: 20100101
  3. HIDROSMIN [Concomitant]
     Dosage: 200 MG, UNKNOWN
     Route: 065
  4. SERMION [Concomitant]
     Dosage: 10 MG, UNKNOWN
     Route: 065
  5. FORTEO [Suspect]
     Dosage: 20 UG, DAILY (1/D)
     Route: 058
     Dates: start: 20110114

REACTIONS (2)
  - ANGINA PECTORIS [None]
  - EYE DISORDER [None]
